FAERS Safety Report 23670230 (Version 2)
Quarter: 2024Q2

REPORT INFORMATION
  Report Type: Spontaneous
  Country: TR (occurrence: TR)
  Receive Date: 20240325
  Receipt Date: 20240425
  Transmission Date: 20240715
  Serious: Yes (Life-Threatening, Hospitalization, Other)
  Sender: FDA-Public Use
  Company Number: TR-SUN PHARMACEUTICAL INDUSTRIES LTD-2024R1-437678

PATIENT
  Age: 18 Year
  Sex: Female
  Weight: 48 kg

DRUGS (1)
  1. VERAPAMIL [Suspect]
     Active Substance: VERAPAMIL HYDROCHLORIDE
     Indication: Product used for unknown indication
     Dosage: UNK
     Route: 065

REACTIONS (10)
  - Overdose [Unknown]
  - Toxicity to various agents [Unknown]
  - Shock [Unknown]
  - Bradycardia [Unknown]
  - Shock [Unknown]
  - Atrioventricular block complete [Unknown]
  - Loss of consciousness [Unknown]
  - Hyporesponsive to stimuli [Unknown]
  - Oedema peripheral [Unknown]
  - Metabolic acidosis [Unknown]
